FAERS Safety Report 25208084 (Version 1)
Quarter: 2025Q2

REPORT INFORMATION
  Report Type: Spontaneous
  Country: DE (occurrence: DE)
  Receive Date: 20250417
  Receipt Date: 20250417
  Transmission Date: 20250717
  Serious: Yes (Other)
  Sender: BOEHRINGER INGELHEIM
  Company Number: DE-BoehringerIngelheim-2025-BI-020826

PATIENT
  Age: 72 Year
  Sex: Male

DRUGS (8)
  1. JARDIANCE [Suspect]
     Active Substance: EMPAGLIFLOZIN
     Indication: Type 2 diabetes mellitus
  2. OLMESARTAN  40 mg [Concomitant]
     Indication: Product used for unknown indication
  3. AMLODIPIN 10mg [Concomitant]
     Indication: Product used for unknown indication
  4. SIMVASTATIN [Concomitant]
     Active Substance: SIMVASTATIN
     Indication: Product used for unknown indication
  5. KOMBOGLYZE 2,5 mg/850 mg [Concomitant]
     Indication: Product used for unknown indication
  6. ASS Protect 100 mg.Tabletten [Concomitant]
     Indication: Product used for unknown indication
  7. DEKRISTOL 500 I.E. Tabletten [Concomitant]
     Indication: Product used for unknown indication
     Dosage: 1-0-0-0
  8. ATORVASTATIN [Concomitant]
     Active Substance: ATORVASTATIN
     Indication: Product used for unknown indication

REACTIONS (3)
  - Urine protein/creatinine ratio abnormal [Unknown]
  - Glomerular filtration rate decreased [Unknown]
  - Blood creatinine increased [Unknown]
